FAERS Safety Report 12478136 (Version 1)
Quarter: 2016Q2

REPORT INFORMATION
  Report Type: Spontaneous
  Country: US (occurrence: US)
  Receive Date: 20160617
  Receipt Date: 20160617
  Transmission Date: 20160815
  Serious: No
  Sender: FDA-Public Use
  Company Number: US-PERRIGO-16US001056

PATIENT
  Age: 71 Year
  Sex: Male
  Weight: 74.38 kg

DRUGS (2)
  1. MINOXIDIL. [Suspect]
     Active Substance: MINOXIDIL
     Dosage: LESS THAN 1/2 CAPFUL, BID
     Route: 061
     Dates: start: 201506
  2. MINOXIDIL. [Suspect]
     Active Substance: MINOXIDIL
     Indication: ALOPECIA
     Dosage: 1/2 CAPFUL, BID
     Route: 061
     Dates: start: 20110428, end: 201506

REACTIONS (4)
  - Alopecia [Unknown]
  - Underdose [Unknown]
  - Application site irritation [Unknown]
  - Application site ulcer [Recovered/Resolved]

NARRATIVE: CASE EVENT DATE: 2015
